FAERS Safety Report 13341800 (Version 1)
Quarter: 2017Q1

REPORT INFORMATION
  Report Type: Spontaneous
  Country: US (occurrence: US)
  Receive Date: 20170316
  Receipt Date: 20170316
  Transmission Date: 20170428
  Serious: Yes (Other)
  Sender: FDA-Public Use
  Company Number: US-CELLTRION INC.-2016US010465

PATIENT

DRUGS (5)
  1. MESALAMINE. [Concomitant]
     Active Substance: MESALAMINE
     Dosage: 4.8 G, DAILY
  2. FOLIC ACID. [Concomitant]
     Active Substance: FOLIC ACID
     Dosage: 2 MG, DAILY
  3. INFLECTRA [Suspect]
     Active Substance: INFLIXIMAB-DYYB
     Indication: CROHN^S DISEASE
     Dosage: 5 MG/KG, SINGLE
     Route: 042
  4. MERCAPTOPURINE. [Concomitant]
     Active Substance: MERCAPTOPURINE
     Dosage: 150 MG, DAILY
  5. PREDNISONE. [Concomitant]
     Active Substance: PREDNISONE
     Dosage: 10 MG, DAILY

REACTIONS (7)
  - Hypersensitivity [Recovered/Resolved]
  - Decreased appetite [Recovered/Resolved]
  - Jaundice cholestatic [Recovered/Resolved]
  - Nausea [Recovered/Resolved]
  - Malaise [Recovered/Resolved]
  - Drug-induced liver injury [Recovered/Resolved]
  - Fatigue [Recovered/Resolved]
